FAERS Safety Report 17247813 (Version 2)
Quarter: 2020Q1

REPORT INFORMATION
  Report Type: Report from Study
  Country: GB (occurrence: GB)
  Receive Date: 20200108
  Receipt Date: 20200116
  Transmission Date: 20200409
  Serious: Yes (Other)
  Sender: FDA-Public Use
  Company Number: GB-KARYOPHARM-2018KPT000628

PATIENT
  Age: 78 Year
  Sex: Female

DRUGS (26)
  1. SIMVASTATIN. [Concomitant]
     Active Substance: SIMVASTATIN
     Indication: PROPHYLAXIS
     Dosage: 40 MG, QD
     Route: 048
     Dates: start: 201709
  2. ONDANSETRON [Concomitant]
     Active Substance: ONDANSETRON
     Indication: PROPHYLAXIS
     Dosage: 8 MG, PRN
     Route: 048
     Dates: start: 20180425
  3. LAXIDO APELSIN [Concomitant]
     Indication: ADVERSE EVENT
     Dosage: 1 SACHET , PRN
     Route: 048
     Dates: start: 20180501
  4. SELINEXOR [Suspect]
     Active Substance: SELINEXOR
     Dosage: 60 MG, WEEKLY
     Route: 048
     Dates: start: 20180703, end: 20180731
  5. SELINEXOR [Suspect]
     Active Substance: SELINEXOR
     Dosage: 80 MG, WEEKLY
     Route: 048
     Dates: start: 20180807, end: 20180904
  6. DEXAMETHASONE. [Suspect]
     Active Substance: DEXAMETHASONE
     Dosage: 12 MG, 2X/WEEK
     Route: 048
     Dates: start: 20180703
  7. ASPIRIN. [Concomitant]
     Active Substance: ASPIRIN
     Indication: PROPHYLAXIS
     Dosage: 75 MG, QD
     Route: 048
     Dates: start: 201709
  8. DEXAMETHASONE. [Suspect]
     Active Substance: DEXAMETHASONE
     Indication: PLASMA CELL MYELOMA
     Dosage: 20 MG, 2X/WEEK
     Route: 048
     Dates: start: 20180417, end: 20180627
  9. GLYCERYL TRINITRATE COX [Concomitant]
     Indication: PRODUCT USED FOR UNKNOWN INDICATION
     Dosage: 400 MCG, PRN
     Route: 060
     Dates: start: 201709
  10. ATORVASTATIN [Concomitant]
     Active Substance: ATORVASTATIN
     Indication: ADVERSE EVENT
     Dosage: 20 MG, QD
     Route: 048
     Dates: start: 20180424
  11. APIXABAN [Concomitant]
     Active Substance: APIXABAN
     Indication: PROPHYLAXIS
     Dosage: 2.5 MG, BID
     Route: 048
     Dates: start: 20180605
  12. SELINEXOR [Suspect]
     Active Substance: SELINEXOR
     Indication: PLASMA CELL MYELOMA
     Dosage: 100 MG, WEEKLY
     Route: 048
     Dates: start: 20180417, end: 20180417
  13. SELINEXOR [Suspect]
     Active Substance: SELINEXOR
     Dosage: 80 MG, WEEKLY
     Route: 048
     Dates: start: 20180424, end: 20180626
  14. ACICLOVIR ^ALPHARMA^ [Concomitant]
     Indication: PROPHYLAXIS
     Dosage: 400 MG, BID
     Route: 048
     Dates: start: 20180207
  15. BISOPROLOL [Concomitant]
     Active Substance: BISOPROLOL
     Indication: PROPHYLAXIS
     Dosage: 3.75 MG, QD
     Route: 048
     Dates: start: 201709
  16. APREPITANT DCI [Concomitant]
     Active Substance: APREPITANT
     Indication: ADVERSE EVENT
     Dosage: 80 MG, QD
     Route: 048
     Dates: start: 20180425
  17. PAMIDRONATE AGILA [Concomitant]
     Indication: PROPHYLAXIS
     Dosage: 30 MG, 1X/4 WEEKS
     Route: 042
     Dates: start: 2013
  18. SERTRALINE A [Concomitant]
     Active Substance: SERTRALINE HYDROCHLORIDE
     Indication: ADVERSE EVENT
     Dosage: 50 MG, QD
     Route: 048
     Dates: start: 20180626
  19. BORTEZOMIB. [Suspect]
     Active Substance: BORTEZOMIB
     Indication: PLASMA CELL MYELOMA
     Dosage: 1.3 MG/M2, WEEKLY X 4 WEEKS, W/ ONE WEEK OFF CYCLE
     Route: 058
     Dates: start: 20180417
  20. LEVOTHYROXINE SODIUM. [Concomitant]
     Active Substance: LEVOTHYROXINE SODIUM
     Indication: PRODUCT USED FOR UNKNOWN INDICATION
     Dosage: 100 MCG, QD
     Route: 048
     Dates: start: 200811
  21. RANITIDINE A [Concomitant]
     Indication: PROPHYLAXIS
     Dosage: 150 MG, BID
     Route: 048
     Dates: start: 201705
  22. ZOPICLONE ACTAVIS [Concomitant]
     Active Substance: ZOPICLONE
     Indication: ADVERSE EVENT
     Dosage: 3.75 MG, QD
     Route: 048
     Dates: start: 20180703, end: 20180925
  23. METOCLOPRAMIDE ACCORD [Concomitant]
     Active Substance: METOCLOPRAMIDE
     Indication: PROPHYLAXIS
     Dosage: 10 MG, PRN
     Route: 048
     Dates: start: 20180515
  24. CHLORAMPHENICOL [Concomitant]
     Active Substance: CHLORAMPHENICOL
     Indication: ADVERSE EVENT
     Dosage: 1 GTT, QID
     Route: 047
     Dates: start: 20180904, end: 20180919
  25. OPTIFAST 800 SHAKE MIX [Concomitant]
     Indication: ADVERSE EVENT
     Dosage: 1 SACHET, PRN
     Route: 048
     Dates: start: 20180619
  26. SELINEXOR [Suspect]
     Active Substance: SELINEXOR
     Dosage: 100 MG, WEEKLY
     Route: 048
     Dates: start: 20180911

REACTIONS (1)
  - Cataract [Recovered/Resolved]

NARRATIVE: CASE EVENT DATE: 20180919
